FAERS Safety Report 7943527-8 (Version None)
Quarter: 2011Q4

REPORT INFORMATION
  Report Type: 
  Country: None (occurrence: None)
  Receive Date: 20111128
  Receipt Date: 20111118
  Transmission Date: 20120403
  Serious: Yes (Hospitalization)
  Sender: FDA-Public Use
  Company Number: US-BAYER-2011-013987

PATIENT
  Age: 21 Year
  Sex: Female
  Weight: 90.703 kg

DRUGS (24)
  1. ONDANSETRON [Concomitant]
     Dosage: 4 MG, UNK
     Route: 048
     Dates: start: 20090523
  2. DROSPIRENONE AND ETHINYL ESTRADIOL [Suspect]
     Indication: CONTRACEPTION
     Dosage: UNK
     Route: 048
     Dates: start: 20080701, end: 20090901
  3. METFORMIN HCL [Concomitant]
     Indication: POLYCYSTIC OVARIES
     Dosage: UNK
     Dates: start: 20090101
  4. OXYCODONE HCL [Concomitant]
     Indication: BACK PAIN
     Dosage: 15 MG, UNK
     Route: 048
     Dates: start: 20080101
  5. OXYCODONE HCL AND ACETAMINOPHEN [Concomitant]
     Dosage: 325 MG, UNK
  6. YASMIN [Suspect]
     Indication: CONTRACEPTION
     Dosage: UNK
     Route: 048
     Dates: start: 20070201, end: 20080701
  7. LORTAB [Concomitant]
     Indication: BACK PAIN
     Dosage: UNK
     Dates: start: 20080101, end: 20110101
  8. CARISOPRODOL [Concomitant]
     Indication: BACK PAIN
     Dosage: UNK
     Dates: start: 20070101, end: 20110101
  9. WELLBUTRIN [Concomitant]
     Indication: DEPRESSION
     Dosage: UNK
     Dates: start: 20090101
  10. SERTRALINE HYDROCHLORIDE [Concomitant]
     Dosage: 100 MG, QD
     Route: 048
     Dates: start: 20061105
  11. OXYCODONE HCL AND ACETAMINOPHEN [Concomitant]
     Dosage: 10 MG, UNK
     Dates: start: 20081201
  12. DROSPIRENONE AND ETHINYL ESTRADIOL [Suspect]
     Indication: PREMENSTRUAL SYNDROME
  13. OXYCODONE HCL [Concomitant]
     Dosage: 30 MG, UNK
     Route: 048
     Dates: start: 20090520, end: 20100107
  14. ZOLOFT [Concomitant]
     Indication: DEPRESSION
     Dosage: UNK
     Dates: start: 20050101
  15. PROMETHAZINE [Concomitant]
     Dosage: 25 MG, UNK
     Route: 048
     Dates: start: 20080902
  16. AMOXICILLIN AND CLAVULANATE POTASSIUM [Concomitant]
     Dosage: 125 MG, UNK
  17. HYDROCODONE BITARTRATE AND ACETAMINOPHEN [Concomitant]
     Dosage: 10 MG, UNK
     Route: 048
     Dates: start: 20090313, end: 20100107
  18. HYDROCODONE BITARTRATE AND ACETAMINOPHEN [Concomitant]
     Dosage: 500 MG, UNK
  19. YASMIN [Suspect]
     Indication: PREMENSTRUAL SYNDROME
  20. AMOXICILLIN AND CLAVULANATE POTASSIUM [Concomitant]
     Dosage: 875 MG, UNK
     Route: 048
     Dates: start: 20090504
  21. HYDROCODONE [Concomitant]
     Indication: PAIN
     Dosage: UNK
     Dates: start: 20050101, end: 20090101
  22. NEXIUM [Concomitant]
     Indication: GASTROOESOPHAGEAL REFLUX DISEASE
     Dosage: 40 MG, UNK
     Route: 048
     Dates: start: 20050101
  23. TIZANIDINE HCL [Concomitant]
     Indication: MUSCLE SPASMS
     Dosage: 4 MG, UNK
     Route: 048
     Dates: start: 20050101, end: 20110101
  24. CARISOPRODIL [Concomitant]
     Dosage: 350 MG, UNK
     Route: 048

REACTIONS (9)
  - NAUSEA [None]
  - GASTROINTESTINAL DISORDER [None]
  - ANXIETY [None]
  - ABDOMINAL PAIN [None]
  - GALLBLADDER DISORDER [None]
  - VOMITING [None]
  - GENERAL PHYSICAL HEALTH DETERIORATION [None]
  - EMOTIONAL DISTRESS [None]
  - CHOLECYSTITIS CHRONIC [None]
